FAERS Safety Report 11245704 (Version 1)
Quarter: 2015Q3

REPORT INFORMATION
  Report Type: Spontaneous
  Country: FR (occurrence: FR)
  Receive Date: 20150707
  Receipt Date: 20150707
  Transmission Date: 20151125
  Serious: Yes (Hospitalization)
  Sender: FDA-Public Use
  Company Number: FR-JNJFOC-20150703372

PATIENT
  Age: 91 Year
  Sex: Male

DRUGS (10)
  1. ARZERRA [Suspect]
     Active Substance: OFATUMUMAB
     Indication: LYMPHOMA
     Route: 042
     Dates: start: 20150310
  2. KARDEGIC [Concomitant]
     Active Substance: ASPIRIN LYSINE
  3. IMBRUVICA [Suspect]
     Active Substance: IBRUTINIB
     Indication: LYMPHOMA
     Route: 048
     Dates: start: 20150310
  4. TAHOR [Concomitant]
     Active Substance: ATORVASTATIN CALCIUM
  5. ZYLORIC [Concomitant]
     Active Substance: ALLOPURINOL
  6. SECTRAL [Suspect]
     Active Substance: ACEBUTOLOL HYDROCHLORIDE
     Indication: PRODUCT USED FOR UNKNOWN INDICATION
     Route: 048
     Dates: start: 201211
  7. TRIATEC [Concomitant]
     Active Substance: RAMIPRIL
  8. NATISPRAY [Concomitant]
     Active Substance: NITROGLYCERIN
  9. IMBRUVICA [Suspect]
     Active Substance: IBRUTINIB
     Indication: LYMPHOMA
     Route: 048
     Dates: start: 20150408
  10. ARZERRA [Suspect]
     Active Substance: OFATUMUMAB
     Indication: LYMPHOMA
     Route: 042
     Dates: start: 20150408, end: 20150408

REACTIONS (2)
  - Atrioventricular block complete [Recovered/Resolved]
  - Off label use [Unknown]

NARRATIVE: CASE EVENT DATE: 20150410
